FAERS Safety Report 10070122 (Version 1)
Quarter: 2014Q2

REPORT INFORMATION
  Report Type: Spontaneous
  Country: US (occurrence: None)
  Receive Date: 20140409
  Receipt Date: 20140409
  Transmission Date: 20141212
  Serious: Yes (Other)
  Sender: FDA-Public Use
  Company Number: None

PATIENT
  Age: 62 Year
  Sex: Female
  Weight: 81.65 kg

DRUGS (1)
  1. LIPOSOMAL DOXORUBICIN [Suspect]
     Indication: OVARIAN CANCER
     Dosage: 40MG/M2 EVERY 28 DAYS INTRAVENOUS
     Route: 042
     Dates: start: 20131211, end: 20131211

REACTIONS (3)
  - Flushing [None]
  - Back pain [None]
  - Chest pain [None]
